FAERS Safety Report 7439099-7 (Version None)
Quarter: 2011Q2

REPORT INFORMATION
  Report Type: 
  Country: None (occurrence: None)
  Receive Date: 20110427
  Receipt Date: 20110413
  Transmission Date: 20111010
  Serious: Yes (Other)
  Sender: FDA-Public Use
  Company Number: US-CELGENEUS-163-21880-11041728

PATIENT
  Sex: Male

DRUGS (14)
  1. REVLIMID [Suspect]
     Indication: MULTIPLE MYELOMA
     Dosage: 25 MILLIGRAM
     Route: 048
     Dates: start: 20100301, end: 20110413
  2. DILTIAZEM [Concomitant]
     Route: 065
  3. OMEPRAZOLE [Concomitant]
     Route: 065
  4. M.V.I. [Concomitant]
     Route: 065
  5. CARBAMAZEPINE [Concomitant]
     Route: 065
  6. METOPROLOL [Concomitant]
     Route: 065
  7. BENZTROPINE [Concomitant]
     Route: 065
  8. DEXAMETHASONE [Concomitant]
     Route: 065
  9. ASPIRIN [Concomitant]
     Route: 065
  10. DIGOXIN [Concomitant]
     Route: 065
  11. LEVOTHYROXINE SODIUM [Concomitant]
     Route: 065
  12. DOCUSATE SODIUM [Concomitant]
     Route: 065
  13. PAROXETINE HCL [Concomitant]
     Route: 065
  14. THIOTHIXENE [Concomitant]
     Route: 065

REACTIONS (2)
  - CARDIAC AMYLOIDOSIS [None]
  - MULTIPLE MYELOMA [None]
